FAERS Safety Report 7051229-8 (Version None)
Quarter: 2010Q4

REPORT INFORMATION
  Report Type: 
  Country: None (occurrence: None)
  Receive Date: 20101018
  Receipt Date: 20101018
  Transmission Date: 20110411
  Serious: Yes (Other)
  Sender: FDA-Public Use
  Company Number: None

PATIENT
  Age: 59 Year
  Sex: Female
  Weight: 50.8029 kg

DRUGS (1)
  1. ALENDRONATE SODIUM [Suspect]
     Indication: OSTEOPENIA
     Dosage: 1 WEEKLY PO
     Route: 048

REACTIONS (5)
  - FEMUR FRACTURE [None]
  - IMPAIRED HEALING [None]
  - LIMB ASYMMETRY [None]
  - PAIN IN EXTREMITY [None]
  - STRESS FRACTURE [None]
